FAERS Safety Report 9157347 (Version 4)
Quarter: 2014Q1

REPORT INFORMATION
  Report Type: Report from Study
  Country: GB (occurrence: GB)
  Receive Date: 20130312
  Receipt Date: 20140213
  Transmission Date: 20141002
  Serious: Yes (Life-Threatening, Hospitalization)
  Sender: FDA-Public Use
  Company Number: GB-SANOFI-AVENTIS-2012SA090960

PATIENT
  Age: 73 Year
  Sex: Male

DRUGS (33)
  1. AFLIBERCEPT [Suspect]
     Indication: COLORECTAL CANCER METASTATIC
     Route: 042
     Dates: start: 20120912, end: 20120912
  2. AFLIBERCEPT [Suspect]
     Indication: COLORECTAL CANCER METASTATIC
     Route: 042
     Dates: start: 20120926, end: 20120926
  3. AFLIBERCEPT [Suspect]
     Indication: COLORECTAL CANCER METASTATIC
     Route: 042
     Dates: start: 20121024, end: 20121024
  4. AFLIBERCEPT [Suspect]
     Indication: COLORECTAL CANCER METASTATIC
     Route: 042
     Dates: start: 20121107, end: 20121107
  5. AFLIBERCEPT [Suspect]
     Indication: COLORECTAL CANCER METASTATIC
     Route: 042
     Dates: start: 20121121, end: 20121121
  6. 5-FU [Suspect]
     Indication: COLORECTAL CANCER METASTATIC
     Dosage: FORM : BOLUS
     Route: 040
     Dates: start: 20120912, end: 20120912
  7. 5-FU [Suspect]
     Indication: COLORECTAL CANCER METASTATIC
     Dosage: FORM : BOLUS
     Route: 040
     Dates: start: 20120926, end: 20120926
  8. 5-FU [Suspect]
     Indication: COLORECTAL CANCER METASTATIC
     Dosage: FORM : BOLUS
     Route: 040
     Dates: start: 20121024, end: 20121024
  9. 5-FU [Suspect]
     Indication: COLORECTAL CANCER METASTATIC
     Dosage: FORM : BOLUS
     Route: 040
     Dates: start: 20121107, end: 20121107
  10. 5-FU [Suspect]
     Indication: COLORECTAL CANCER METASTATIC
     Dosage: FORM : BOLUS
     Route: 040
     Dates: start: 20121121, end: 20121121
  11. 5-FU [Suspect]
     Indication: COLORECTAL CANCER METASTATIC
     Route: 042
     Dates: start: 20120912, end: 20120912
  12. 5-FU [Suspect]
     Indication: COLORECTAL CANCER METASTATIC
     Route: 042
     Dates: start: 20120926, end: 20120926
  13. 5-FU [Suspect]
     Indication: COLORECTAL CANCER METASTATIC
     Route: 042
     Dates: start: 20121024, end: 20121024
  14. 5-FU [Suspect]
     Indication: COLORECTAL CANCER METASTATIC
     Route: 042
     Dates: start: 20121107, end: 20121107
  15. 5-FU [Suspect]
     Indication: COLORECTAL CANCER METASTATIC
     Route: 042
     Dates: start: 20121121, end: 20121121
  16. IRINOTECAN [Suspect]
     Indication: COLORECTAL CANCER METASTATIC
     Route: 042
     Dates: start: 20120912, end: 20120912
  17. IRINOTECAN [Suspect]
     Indication: COLORECTAL CANCER METASTATIC
     Route: 042
     Dates: start: 20120926, end: 20120926
  18. IRINOTECAN [Suspect]
     Indication: COLORECTAL CANCER METASTATIC
     Route: 042
     Dates: start: 20121024, end: 20121024
  19. IRINOTECAN [Suspect]
     Indication: COLORECTAL CANCER METASTATIC
     Route: 042
     Dates: start: 20121107, end: 20121107
  20. IRINOTECAN [Suspect]
     Indication: COLORECTAL CANCER METASTATIC
     Route: 042
     Dates: start: 20121121, end: 20121121
  21. LEUCOVORIN [Suspect]
     Indication: COLORECTAL CANCER METASTATIC
     Route: 042
     Dates: start: 20120912, end: 20120912
  22. LEUCOVORIN [Suspect]
     Indication: COLORECTAL CANCER METASTATIC
     Route: 042
     Dates: start: 20120926, end: 20120926
  23. LEUCOVORIN [Suspect]
     Indication: COLORECTAL CANCER METASTATIC
     Route: 042
     Dates: start: 20121024, end: 20121024
  24. LEUCOVORIN [Suspect]
     Indication: COLORECTAL CANCER METASTATIC
     Route: 042
     Dates: start: 20121107, end: 20121107
  25. LEUCOVORIN [Suspect]
     Indication: COLORECTAL CANCER METASTATIC
     Route: 042
     Dates: start: 20121121, end: 20121121
  26. LANSOPRAZOLE [Concomitant]
     Dates: start: 2012
  27. CO-CODAMOL [Concomitant]
     Dates: start: 20120918
  28. MOVICOL [Concomitant]
     Dates: start: 20120918
  29. OMEPRAZOLE [Concomitant]
     Dates: start: 20120924
  30. LOPERAMIDE [Concomitant]
     Dates: start: 20120924
  31. RECTOGESIC [Concomitant]
     Dates: start: 2012
  32. ANTIBIOTICS [Concomitant]
     Dates: start: 20121119
  33. LACTULOSE [Concomitant]
     Dates: start: 201212

REACTIONS (2)
  - Lung infection [Recovered/Resolved]
  - Respiratory failure [Recovered/Resolved]
